FAERS Safety Report 5752186-4 (Version None)
Quarter: 2008Q2

REPORT INFORMATION
  Report Type: 
  Country: None (occurrence: None)
  Receive Date: 20080527
  Receipt Date: 20080508
  Transmission Date: 20081010
  Serious: Yes (Hospitalization)
  Sender: FDA-Public Use
  Company Number: 2008AL004091

PATIENT
  Age: 87 Year
  Sex: Female

DRUGS (5)
  1. DIGOXIN [Suspect]
     Dosage: 0.125MCG DAILY PO
     Route: 048
  2. FUROSEMIDE [Concomitant]
  3. VERAPAMIL [Concomitant]
  4. LEVOTHROXINE [Concomitant]
  5. POTASSIUM CHLORIDE [Concomitant]

REACTIONS (5)
  - CHILLS [None]
  - NAUSEA [None]
  - THERAPEUTIC AGENT TOXICITY [None]
  - VERTIGO [None]
  - VOMITING [None]
